FAERS Safety Report 22907416 (Version 2)
Quarter: 2024Q1

REPORT INFORMATION
  Report Type: Spontaneous
  Country: CA (occurrence: CA)
  Receive Date: 20230905
  Receipt Date: 20240110
  Transmission Date: 20240410
  Serious: Yes (Hospitalization, Other)
  Sender: FDA-Public Use
  Company Number: CA-BAUSCH-BL-2023-013340

PATIENT
  Age: 62 Year
  Sex: Female

DRUGS (16)
  1. DEXAMETHASONE [Suspect]
     Active Substance: DEXAMETHASONE
     Indication: Plasma cell myeloma refractory
     Route: 065
  2. CISPLATIN [Suspect]
     Active Substance: CISPLATIN
     Indication: Plasma cell myeloma refractory
     Route: 065
  3. CYCLOPHOSPHAMIDE [Suspect]
     Active Substance: CYCLOPHOSPHAMIDE
     Indication: Plasma cell myeloma refractory
     Route: 065
  4. DOXORUBICIN HYDROCHLORIDE [Suspect]
     Active Substance: DOXORUBICIN HYDROCHLORIDE
     Indication: Plasma cell myeloma refractory
     Route: 065
  5. ETOPOSIDE [Suspect]
     Active Substance: ETOPOSIDE
     Indication: Plasma cell myeloma refractory
     Route: 065
  6. CARFILZOMIB [Suspect]
     Active Substance: CARFILZOMIB
     Indication: Plasma cell myeloma
     Dosage: POWDER FOR SOLUTION INTRAVENOUS
     Route: 065
  7. CARFILZOMIB [Suspect]
     Active Substance: CARFILZOMIB
     Route: 065
  8. FILGRASTIM [Suspect]
     Active Substance: FILGRASTIM
     Indication: Plasma cell myeloma
     Route: 065
  9. REVLIMID [Suspect]
     Active Substance: LENALIDOMIDE
     Indication: Plasma cell myeloma
     Route: 065
  10. REVLIMID [Suspect]
     Active Substance: LENALIDOMIDE
     Route: 065
  11. VELCADE [Suspect]
     Active Substance: BORTEZOMIB
     Indication: Plasma cell myeloma
     Dosage: VELCADE SINGLE USE VIAL?POWDER FOR SOLUTION INTRAVENOUS
     Route: 065
  12. VENCLEXTA [Suspect]
     Active Substance: VENETOCLAX
     Indication: Product used for unknown indication
     Route: 048
  13. VENCLEXTA [Suspect]
     Active Substance: VENETOCLAX
     Route: 048
  14. DEXPANTHENOL [Concomitant]
     Active Substance: DEXPANTHENOL
     Indication: Product used for unknown indication
     Route: 065
  15. VENETOCLAX [Concomitant]
     Active Substance: VENETOCLAX
     Indication: Product used for unknown indication
     Route: 065
  16. POMALIDOMIDE [Concomitant]
     Active Substance: POMALIDOMIDE
     Indication: Product used for unknown indication
     Route: 065

REACTIONS (21)
  - Hepatic steatosis [Recovering/Resolving]
  - Plasma cell myeloma refractory [Recovering/Resolving]
  - Pyrexia [Recovering/Resolving]
  - Confusional state [Recovering/Resolving]
  - Plasma cells increased [Recovering/Resolving]
  - Aggression [Recovering/Resolving]
  - Anaemia [Recovering/Resolving]
  - Blood calcium increased [Recovering/Resolving]
  - Blood disorder [Recovering/Resolving]
  - Bone marrow disorder [Recovering/Resolving]
  - Cytopenia [Recovering/Resolving]
  - Disease progression [Recovering/Resolving]
  - Fibrosis [Recovering/Resolving]
  - Gastrointestinal disorder [Recovering/Resolving]
  - Osteolysis [Recovering/Resolving]
  - Plasma cell myeloma [Recovering/Resolving]
  - Plasma cell myeloma recurrent [Recovering/Resolving]
  - Renal failure [Recovering/Resolving]
  - Sepsis [Recovering/Resolving]
  - Hepatic enzyme increased [Recovering/Resolving]
  - Off label use [Recovering/Resolving]
